FAERS Safety Report 8024202-0 (Version None)
Quarter: 2012Q1

REPORT INFORMATION
  Report Type: 
  Country: None (occurrence: None)
  Receive Date: 20120105
  Receipt Date: 20120101
  Transmission Date: 20120608
  Serious: Yes (Other)
  Sender: FDA-Public Use
  Company Number: PHHY2012US000502

PATIENT

DRUGS (2)
  1. GLEEVEC [Suspect]
     Indication: POLYCYTHAEMIA VERA
     Dosage: 400 MG, DAILY
     Route: 065
  2. ASPIRIN [Concomitant]
     Dosage: 81 MG, DAILY
     Route: 065

REACTIONS (5)
  - PRURITUS [None]
  - PLATELET COUNT INCREASED [None]
  - SPLENOMEGALY [None]
  - WHITE BLOOD CELL COUNT INCREASED [None]
  - DIARRHOEA [None]
